FAERS Safety Report 13024971 (Version 2)
Quarter: 2017Q1

REPORT INFORMATION
  Report Type: Spontaneous
  Country: US (occurrence: US)
  Receive Date: 20161213
  Receipt Date: 20170209
  Transmission Date: 20170428
  Serious: Yes (Hospitalization)
  Sender: FDA-Public Use
  Company Number: US-TAIHO ONCOLOGY INC-EU-2016-03160

PATIENT
  Age: 51 Year
  Sex: Male

DRUGS (16)
  1. DICYCLOVERINE [Concomitant]
     Active Substance: DICYCLOMINE HYDROCHLORIDE
     Dosage: NI
  2. MEGESTROL [Concomitant]
     Active Substance: MEGESTROL
     Dosage: NI
  3. LONSURF [Suspect]
     Active Substance: TIPIRACIL HYDROCHLORIDE\TRIFLURIDINE
     Indication: RECTAL CANCER
     Route: 048
     Dates: start: 20161024
  4. CLONAZEPAM. [Concomitant]
     Active Substance: CLONAZEPAM
     Dosage: NI
  5. TEMAZEPAM. [Concomitant]
     Active Substance: TEMAZEPAM
     Dosage: NI
  6. MORPHINE [Concomitant]
     Active Substance: MORPHINE
     Dosage: NI
  7. GABAPENTIN. [Concomitant]
     Active Substance: GABAPENTIN
     Dosage: NI
  8. PAROXETINE. [Concomitant]
     Active Substance: PAROXETINE
     Dosage: NI
  9. ATROVENT HFA [Concomitant]
     Active Substance: IPRATROPIUM BROMIDE
     Dosage: NI
  10. IPRATROPIUM [Concomitant]
     Active Substance: IPRATROPIUM
     Dosage: NI
  11. DEXTROPROPOXYPHENE [Concomitant]
     Active Substance: PROPOXYPHENE HYDROCHLORIDE
     Dosage: NI
  12. IPRATROPIUM BROMIDE/SALBUTAMOL SULFATE [Concomitant]
     Dosage: NI
  13. MIRTAZAPINE. [Concomitant]
     Active Substance: MIRTAZAPINE
     Dosage: NI
  14. INCRUSE ELLIPTA [Concomitant]
     Active Substance: UMECLIDINIUM BROMIDE
     Dosage: NI
  15. BREO ELLIPTA [Concomitant]
     Active Substance: FLUTICASONE FUROATE\VILANTEROL TRIFENATATE
     Dosage: NI
  16. LEVOFLOXACIN. [Concomitant]
     Active Substance: LEVOFLOXACIN
     Dosage: NI

REACTIONS (4)
  - Lip disorder [Not Recovered/Not Resolved]
  - Pneumonia [Unknown]
  - Nausea [Not Recovered/Not Resolved]
  - Abdominal pain [Unknown]

NARRATIVE: CASE EVENT DATE: 201611
